FAERS Safety Report 11188860 (Version 2)
Quarter: 2015Q4

REPORT INFORMATION
  Report Type: Spontaneous
  Country: US (occurrence: US)
  Receive Date: 20150615
  Receipt Date: 20151006
  Transmission Date: 20160304
  Serious: Yes (Other)
  Sender: FDA-Public Use
  Company Number: US-AMGEN-USASP2015056095

PATIENT
  Sex: Female

DRUGS (1)
  1. PROLIA [Suspect]
     Active Substance: DENOSUMAB
     Indication: PRODUCT USED FOR UNKNOWN INDICATION
     Dosage: UNK, UNK
     Route: 065
     Dates: start: 20150527

REACTIONS (5)
  - Sinus disorder [Recovered/Resolved]
  - Osteonecrosis of jaw [Unknown]
  - Feeling hot [Unknown]
  - Gingival pain [Unknown]
  - Gingival discolouration [Unknown]
